FAERS Safety Report 17999770 (Version 1)
Quarter: 2020Q3

REPORT INFORMATION
  Report Type: Spontaneous
  Country: US (occurrence: US)
  Receive Date: 20200709
  Receipt Date: 20200709
  Transmission Date: 20201103
  Serious: No
  Sender: FDA-Public Use
  Company Number: US-SHIRE-US202021916

PATIENT
  Sex: Female

DRUGS (1)
  1. GATTEX [Suspect]
     Active Substance: TEDUGLUTIDE\WATER
     Indication: SHORT-BOWEL SYNDROME
     Dosage: 5.4 MILLIGRAM, 1X/DAY:QD
     Route: 065
     Dates: start: 20200624

REACTIONS (3)
  - Headache [Unknown]
  - Nausea [Unknown]
  - Chest pain [Unknown]
